FAERS Safety Report 7618528-X (Version None)
Quarter: 2011Q3

REPORT INFORMATION
  Report Type: 
  Country: None (occurrence: None)
  Receive Date: 20110718
  Receipt Date: 20110705
  Transmission Date: 20111222
  Serious: Yes (Other)
  Sender: FDA-Public Use
  Company Number: US-BAYER-2011-030123

PATIENT
  Sex: Female
  Weight: 68.027 kg

DRUGS (3)
  1. NSAID'S [Concomitant]
  2. IBUPROFEN (ADVIL) [Concomitant]
  3. YAZ [Suspect]
     Dosage: UNK
     Dates: start: 20060101, end: 20081101

REACTIONS (3)
  - DEEP VEIN THROMBOSIS [None]
  - INJURY [None]
  - PAIN [None]
